FAERS Safety Report 15028462 (Version 2)
Quarter: 2018Q3

REPORT INFORMATION
  Report Type: Spontaneous
  Country: DE (occurrence: DE)
  Receive Date: 20180619
  Receipt Date: 20180810
  Transmission Date: 20181010
  Serious: Yes (Life-Threatening, Hospitalization, Other)
  Sender: FDA-Public Use
  Company Number: DE-GLAXOSMITHKLINE-DE2018GSK108002

PATIENT
  Age: 39 Year
  Sex: Female

DRUGS (4)
  1. PREDNISOLON [Concomitant]
     Active Substance: PREDNISOLONE
     Indication: SYSTEMIC LUPUS ERYTHEMATOSUS
     Dosage: UNK
     Route: 065
     Dates: start: 2012
  2. BENLYSTA [Suspect]
     Active Substance: BELIMUMAB
     Indication: SYSTEMIC LUPUS ERYTHEMATOSUS
     Dosage: 200 MG, WE
     Route: 058
     Dates: start: 20180607, end: 20180607
  3. DEKRISTOL [Concomitant]
     Active Substance: CHOLECALCIFEROL
     Indication: SYSTEMIC LUPUS ERYTHEMATOSUS
     Dosage: 20000 IU, WE
     Route: 048
  4. QUENSYL [Concomitant]
     Active Substance: HYDROXYCHLOROQUINE
     Indication: SYSTEMIC LUPUS ERYTHEMATOSUS
     Dosage: 200 MG, QD
     Route: 048
     Dates: start: 2012

REACTIONS (12)
  - Swollen tongue [Recovered/Resolved]
  - Swelling [Recovered/Resolved]
  - Bronchospasm [Recovered/Resolved]
  - Disease recurrence [Unknown]
  - Respiratory distress [Unknown]
  - Pharyngeal oedema [Recovered/Resolved]
  - Dysphonia [Recovered/Resolved]
  - Face oedema [Recovered/Resolved]
  - Dyspnoea [Recovered/Resolved]
  - Laryngeal oedema [Recovered/Resolved]
  - Lip swelling [Recovered/Resolved]
  - Dermatitis allergic [Recovered/Resolved]

NARRATIVE: CASE EVENT DATE: 20180607
